FAERS Safety Report 7363503-6 (Version None)
Quarter: 2011Q1

REPORT INFORMATION
  Report Type: 
  Country: None (occurrence: None)
  Receive Date: 20110321
  Receipt Date: 20110314
  Transmission Date: 20110831
  Serious: Yes (Hospitalization)
  Sender: FDA-Public Use
  Company Number: IN-BRISTOL-MYERS SQUIBB COMPANY-15604556

PATIENT
  Age: 65 Year
  Sex: Female
  Weight: 67 kg

DRUGS (5)
  1. LOSARTAN POTASSIUM [Concomitant]
  2. ONGLYZA [Suspect]
     Indication: DIABETES MELLITUS
     Dates: start: 20110130
  3. GLIPIZIDE [Concomitant]
  4. CARDACE [Suspect]
  5. METFORMIN [Concomitant]

REACTIONS (2)
  - ANGIOEDEMA [None]
  - RESPIRATORY DISORDER [None]
